FAERS Safety Report 6241923-0 (Version None)
Quarter: 2009Q2

REPORT INFORMATION
  Report Type: 
  Country: None (occurrence: None)
  Receive Date: 20090623
  Receipt Date: 20090608
  Transmission Date: 20091009
  Serious: Yes (Other)
  Sender: FDA-Public Use
  Company Number: IL-GENENTECH-267938

PATIENT
  Age: 50 Year
  Sex: Female

DRUGS (8)
  1. AVASTIN [Suspect]
     Indication: BREAST CANCER METASTATIC
  2. XELODA [Suspect]
     Indication: BREAST CANCER METASTATIC
     Dosage: 2500 MG/M2, UNK
     Route: 048
     Dates: start: 20080101
  3. DOCETAXEL [Suspect]
     Indication: BREAST CANCER METASTATIC
  4. LETROZOLE [Suspect]
     Indication: BREAST CANCER METASTATIC
  5. BEZAFIBRATE [Concomitant]
     Indication: HYPERGLYCAEMIA
     Dosage: 400 MG, QD
  6. ATORVASTATIN CALCIUM [Concomitant]
     Indication: DRUG USE FOR UNKNOWN INDICATION
  7. ATENOLOL [Concomitant]
     Indication: HYPERTENSION
     Dosage: 25 MG, QD
  8. IBUPROFEN [Concomitant]
     Indication: PAIN
     Dosage: 200 MG, QD

REACTIONS (2)
  - HYPERTRIGLYCERIDAEMIA [None]
  - NEOPLASM PROGRESSION [None]
